FAERS Safety Report 13639039 (Version 5)
Quarter: 2017Q3

REPORT INFORMATION
  Report Type: Spontaneous
  Country: US (occurrence: US)
  Receive Date: 20170609
  Receipt Date: 20170801
  Transmission Date: 20171127
  Serious: Yes (Hospitalization)
  Sender: FDA-Public Use
  Company Number: US-ACTELION-A-NJ2017-155063

PATIENT
  Age: 72 Year
  Sex: Male

DRUGS (11)
  1. OPSUMIT [Suspect]
     Active Substance: MACITENTAN
     Indication: PULMONARY ARTERIAL HYPERTENSION
     Dosage: 10 MG, QD
     Route: 048
     Dates: start: 20140301
  2. VELETRI [Suspect]
     Active Substance: EPOPROSTENOL
     Indication: PULMONARY ARTERIAL HYPERTENSION
     Dosage: 26 NG/KG, PER MIN
     Route: 042
     Dates: start: 20170506
  3. DIOVAN [Concomitant]
     Active Substance: VALSARTAN
  4. ADCIRCA [Concomitant]
     Active Substance: TADALAFIL
     Dosage: 40 MG, QD
     Dates: start: 20140211
  5. OMEPRAZOLE. [Concomitant]
     Active Substance: OMEPRAZOLE
  6. ALVESCO [Concomitant]
     Active Substance: CICLESONIDE
  7. XOPENEX [Concomitant]
     Active Substance: LEVALBUTEROL HYDROCHLORIDE
  8. WARFARIN [Concomitant]
     Active Substance: WARFARIN
  9. OMNARIS [Concomitant]
     Active Substance: CICLESONIDE
  10. METOPROLOL. [Concomitant]
     Active Substance: METOPROLOL
  11. SPIRONOLACTONE. [Concomitant]
     Active Substance: SPIRONOLACTONE

REACTIONS (13)
  - Pulmonary oedema [Recovered/Resolved]
  - Decreased appetite [Not Recovered/Not Resolved]
  - Catheter site haemorrhage [Unknown]
  - Peripheral swelling [Not Recovered/Not Resolved]
  - Retching [Unknown]
  - Blood creatinine increased [Not Recovered/Not Resolved]
  - Renal impairment [Recovered/Resolved]
  - Fluid retention [Recovered/Resolved]
  - Headache [Unknown]
  - Nausea [Unknown]
  - Device breakage [Recovered/Resolved]
  - Dehydration [Recovered/Resolved]
  - Diarrhoea [Unknown]

NARRATIVE: CASE EVENT DATE: 20170506
